FAERS Safety Report 5220704-0 (Version None)
Quarter: 2007Q1

REPORT INFORMATION
  Report Type: 
  Country: None (occurrence: None)
  Receive Date: 20070125
  Receipt Date: 20070125
  Transmission Date: 20070707
  Serious: Yes (Hospitalization)
  Sender: FDA-Public Use
  Company Number: None

PATIENT
  Sex: Male
  Weight: 161 kg

DRUGS (1)
  1. ABILIFY [Suspect]
     Indication: SCHIZOAFFECTIVE DISORDER
     Dosage: 10 MG  HS  PO
     Route: 048
     Dates: start: 20070110

REACTIONS (4)
  - CONFUSIONAL STATE [None]
  - HYPERTENSION [None]
  - NEUROLEPTIC MALIGNANT SYNDROME [None]
  - RESPIRATORY DISORDER [None]
